FAERS Safety Report 5481481-1 (Version None)
Quarter: 2007Q4

REPORT INFORMATION
  Report Type: 
  Country: None (occurrence: None)
  Receive Date: 20071005
  Receipt Date: 20071005
  Transmission Date: 20080405
  Serious: Yes (Death, Life-Threatening, Hospitalization)
  Sender: FDA-Public Use
  Company Number: None

PATIENT
  Age: 65 Year
  Sex: Male
  Weight: 77 kg

DRUGS (10)
  1. GLEEVEC [Suspect]
     Indication: GLIOBLASTOMA
     Dosage: 400 MG BID PO
     Route: 048
     Dates: start: 20070905, end: 20071002
  2. HYDROXYUREA [Suspect]
     Dosage: 500 MG BID PO
     Route: 048
     Dates: start: 20070906, end: 20071002
  3. RAD001 [Suspect]
     Dosage: 2.5 MG QOD PO
     Route: 048
     Dates: start: 20070906, end: 20071002
  4. PRILOSEC [Concomitant]
  5. NORVASC [Concomitant]
  6. LOVENOX [Concomitant]
  7. DILANTIN [Concomitant]
  8. KEPPRA [Concomitant]
  9. DEXAMETHASONE 0.5MG TAB [Concomitant]
  10. SIMVASTATIN [Concomitant]

REACTIONS (2)
  - EMBOLISM [None]
  - THROMBOSIS [None]
